FAERS Safety Report 10611451 (Version 1)
Quarter: 2014Q4

REPORT INFORMATION
  Report Type: Spontaneous
  Country: IT (occurrence: None)
  Receive Date: 20141124
  Receipt Date: 20141124
  Transmission Date: 20150529
  Serious: Yes (Death)
  Sender: FDA-Public Use
  Company Number: NSR_01687_2014

PATIENT
  Age: 58 Year
  Sex: Male

DRUGS (4)
  1. BACLOFEN. [Suspect]
     Active Substance: BACLOFEN
     Indication: MUSCLE SPASMS
     Route: 037
  2. DIAZEPAM. [Suspect]
     Active Substance: DIAZEPAM
     Indication: PARESIS
     Dosage: DF
     Route: 048
  3. DIAZEPAM. [Suspect]
     Active Substance: DIAZEPAM
     Indication: MUSCLE SPASMS
     Dosage: DF
     Route: 048
  4. BACLOFEN. [Suspect]
     Active Substance: BACLOFEN
     Indication: PARESIS
     Route: 037

REACTIONS (5)
  - Arrhythmia [None]
  - Refusal of treatment by patient [None]
  - Bradycardia [None]
  - Hypotension [None]
  - Therapeutic response decreased [None]
